FAERS Safety Report 24018255 (Version 1)
Quarter: 2024Q2

REPORT INFORMATION
  Report Type: Spontaneous
  Country: JP (occurrence: JP)
  Receive Date: 20240627
  Receipt Date: 20240627
  Transmission Date: 20240716
  Serious: Yes (Other)
  Sender: FDA-Public Use
  Company Number: JP-SHIRE-JP201919055

PATIENT
  Age: 10 Year
  Sex: Male

DRUGS (3)
  1. INTUNIV [Suspect]
     Active Substance: GUANFACINE HYDROCHLORIDE
     Indication: Attention deficit hyperactivity disorder
     Route: 048
  2. ABILIFY [Suspect]
     Active Substance: ARIPIPRAZOLE
     Route: 048
  3. JEBIK V [Concomitant]
     Dosage: .5 MILLILITER
     Route: 065
     Dates: start: 20190603, end: 20190603

REACTIONS (2)
  - Pain in extremity [Recovered/Resolved]
  - Hot flush [Recovered/Resolved]

NARRATIVE: CASE EVENT DATE: 20190603
